FAERS Safety Report 6577788-7 (Version None)
Quarter: 2010Q1

REPORT INFORMATION
  Report Type: 
  Country: None (occurrence: None)
  Receive Date: 20100211
  Receipt Date: 20100208
  Transmission Date: 20100710
  Serious: Yes (Hospitalization)
  Sender: FDA-Public Use
  Company Number: IT-BAYER-201015272GPV

PATIENT
  Age: 82 Year

DRUGS (1)
  1. CIPROXIN [Suspect]
     Indication: URINARY TRACT INFECTION BACTERIAL
     Dosage: TOTAL DAILY DOSE: 1000 MG  UNIT DOSE: 1000 MG
     Route: 048
     Dates: start: 20091217, end: 20091221

REACTIONS (2)
  - NERVOUS SYSTEM DISORDER [None]
  - SOMNOLENCE [None]
